FAERS Safety Report 9128254 (Version 4)
Quarter: 2013Q2

REPORT INFORMATION
  Report Type: Spontaneous
  Country: JP (occurrence: JP)
  Receive Date: 20130228
  Receipt Date: 20130610
  Transmission Date: 20140414
  Serious: Yes (Other)
  Sender: FDA-Public Use
  Company Number: JP-GILEAD-2013-0070747

PATIENT
  Age: 66 Year
  Sex: Female

DRUGS (1)
  1. HEPSERA [Suspect]
     Indication: HEPATITIS B
     Route: 048

REACTIONS (4)
  - Osteomalacia [Unknown]
  - Weight decreased [Unknown]
  - Neoplasm [Unknown]
  - Blood phosphorus decreased [Unknown]
